FAERS Safety Report 7346918-1 (Version None)
Quarter: 2011Q1

REPORT INFORMATION
  Report Type: 
  Country: None (occurrence: None)
  Receive Date: 20110309
  Receipt Date: 20110309
  Transmission Date: 20110831
  Serious: Yes (Life-Threatening)
  Sender: FDA-Public Use
  Company Number: None

PATIENT
  Sex: Female
  Weight: 42.6381 kg

DRUGS (1)
  1. TRIAD STERILE ALCOHOL PREP PADS [Suspect]
     Indication: MULTIPLE SCLEROSIS
     Dosage: 1 PREP. PAD DAILY STOPED TAKING WHEN RECALLED IN JANUARY

REACTIONS (17)
  - INJECTION SITE REACTION [None]
  - HYPOPHAGIA [None]
  - EYE INFLAMMATION [None]
  - INJECTION SITE PAIN [None]
  - NAUSEA [None]
  - MALAISE [None]
  - PRODUCT QUALITY ISSUE [None]
  - VOMITING [None]
  - ARTHRALGIA [None]
  - BACK PAIN [None]
  - ABDOMINAL PAIN UPPER [None]
  - ABDOMINAL DISTENSION [None]
  - WEIGHT DECREASED [None]
  - CYST [None]
  - EYE DISORDER [None]
  - CHEST DISCOMFORT [None]
  - INJECTION SITE DISCOLOURATION [None]
